FAERS Safety Report 10024362 (Version 1)
Quarter: 2014Q1

REPORT INFORMATION
  Report Type: Spontaneous
  Country: DE (occurrence: None)
  Receive Date: 20140203
  Receipt Date: 20140203
  Transmission Date: 20141002
  Serious: Yes (Other)
  Sender: FDA-Public Use
  Company Number: 062-50794-13110712

PATIENT
  Age: 38 Year
  Sex: Female

DRUGS (15)
  1. VIDAZA [Suspect]
     Indication: ACUTE MYELOID LEUKAEMIA
     Dosage: NOT PROVIDED, INJ
  2. CEPHALOSPORIN [Concomitant]
  3. CLEXANE (HEPARIN-FRACTION, SODIUM SALT) [Concomitant]
  4. TRAMADOL (TRMADOL) [Concomitant]
  5. MACROGOL (MACROGROL) [Concomitant]
  6. L-THYROXIN [Concomitant]
  7. NORATHISTERON [Concomitant]
  8. PANTOPRAZOLE (PANTOPRAZOLE) [Concomitant]
  9. POSACONAZOL [Concomitant]
  10. ONDASETRON (ONDANSETRON) [Concomitant]
  11. LEVOFLOXACIN (LEVOFLOXACIN) [Concomitant]
  12. DEXAMETHASOE (DEXAMETHASONE) [Concomitant]
  13. ALIZEPRID [Concomitant]
  14. MCP [Concomitant]
  15. LORAZEPAM (LORAZEPAM) [Concomitant]

REACTIONS (1)
  - Vaginal haemorrhage [None]
